FAERS Safety Report 21177786 (Version 2)
Quarter: 2022Q3

REPORT INFORMATION
  Report Type: Spontaneous
  Country: CH (occurrence: CH)
  Receive Date: 20220805
  Receipt Date: 20220809
  Transmission Date: 20221027
  Serious: Yes (Hospitalization)
  Sender: FDA-Public Use
  Company Number: CH-ELI_LILLY_AND_COMPANY-CH202205011158

PATIENT
  Age: 54 Year
  Sex: Female
  Weight: 57 kg

DRUGS (4)
  1. RETEVMO [Suspect]
     Active Substance: SELPERCATINIB
     Indication: Lung neoplasm malignant
     Dosage: 120 MG, UNKNOWN
     Route: 048
     Dates: start: 20220312, end: 20220325
  2. RETEVMO [Suspect]
     Active Substance: SELPERCATINIB
     Dosage: UNK, UNKNOWN
     Route: 048
  3. VITAMIN D NOS [Concomitant]
     Active Substance: VITAMIN D NOS
     Indication: Product used for unknown indication
  4. ZOLEDRONATE DISODIUM [Concomitant]
     Active Substance: ZOLEDRONATE DISODIUM
     Indication: Metastases to bone

REACTIONS (6)
  - Conjunctivitis [Recovered/Resolved]
  - Headache [Unknown]
  - Nausea [Recovered/Resolved]
  - Rash [Recovered/Resolved]
  - Vomiting [Recovered/Resolved]
  - Liver function test increased [Unknown]

NARRATIVE: CASE EVENT DATE: 20220321
